FAERS Safety Report 10243828 (Version 1)
Quarter: 2014Q2

REPORT INFORMATION
  Report Type: Spontaneous
  Country: DK (occurrence: CN)
  Receive Date: 20140618
  Receipt Date: 20140618
  Transmission Date: 20141212
  Serious: Yes (Other)
  Sender: FDA-Public Use
  Company Number: CN-FRI-1000068204

PATIENT
  Age: 28 Year
  Sex: Male

DRUGS (1)
  1. LEXAPRO [Suspect]
     Indication: MAJOR DEPRESSION
     Route: 048
     Dates: start: 2011

REACTIONS (3)
  - Mental impairment [Not Recovered/Not Resolved]
  - Poverty of thought content [Not Recovered/Not Resolved]
  - Asthenia [Not Recovered/Not Resolved]
